FAERS Safety Report 10088258 (Version 1)
Quarter: 2014Q2

REPORT INFORMATION
  Report Type: Report from Study
  Country: US (occurrence: US)
  Receive Date: 20140421
  Receipt Date: 20140421
  Transmission Date: 20141212
  Serious: Yes (Other)
  Sender: FDA-Public Use
  Company Number: US-ROCHE-1381170

PATIENT
  Age: 40 Year
  Sex: Female
  Weight: 56.75 kg

DRUGS (10)
  1. ACTEMRA [Suspect]
     Indication: RHEUMATOID ARTHRITIS
     Dosage: LAST INFUSION: 06/MAR/2014.
     Route: 058
     Dates: start: 20140403
  2. ACTEMRA [Suspect]
     Route: 058
     Dates: start: 20140306
  3. CLONAZEPAM [Suspect]
     Indication: PRODUCT USED FOR UNKNOWN INDICATION
     Route: 065
  4. METHOTREXATE [Concomitant]
     Route: 042
  5. FENTANYL PATCH [Concomitant]
     Route: 065
  6. OXYCODONE [Concomitant]
     Indication: PAIN
     Route: 065
  7. BACLOFEN [Concomitant]
     Indication: MUSCLE SPASMS
     Route: 065
  8. LODINE [Concomitant]
     Route: 065
  9. MAXALT [Concomitant]
     Route: 065
  10. LEXAPRO [Concomitant]
     Indication: ANXIETY
     Dosage: 1 TABLET
     Route: 065

REACTIONS (9)
  - Pruritus [Recovered/Resolved]
  - Fatigue [Recovered/Resolved]
  - Feeling of body temperature change [Unknown]
  - Poor venous access [Unknown]
  - Neutropenia [Unknown]
  - Haemoglobin decreased [Unknown]
  - Migraine [Unknown]
  - Neck pain [Unknown]
  - Nausea [Unknown]
